FAERS Safety Report 17138811 (Version 1)
Quarter: 2019Q4

REPORT INFORMATION
  Report Type: Spontaneous
  Country: US (occurrence: US)
  Receive Date: 20191211
  Receipt Date: 20191211
  Transmission Date: 20200122
  Serious: No
  Sender: FDA-Public Use
  Company Number: US-UCBSA-2016022240

PATIENT
  Age: 66 Year
  Sex: Female
  Weight: 53.5 kg

DRUGS (1)
  1. CIMZIA [Suspect]
     Active Substance: CERTOLIZUMAB PEGOL
     Indication: CROHN^S DISEASE
     Dosage: 400 MG, EV 4 WEEKS
     Route: 058
     Dates: start: 201601

REACTIONS (3)
  - Injection site pain [Recovered/Resolved]
  - Crohn^s disease [Unknown]
  - Product dose omission [Unknown]

NARRATIVE: CASE EVENT DATE: 201601
